FAERS Safety Report 15100753 (Version 1)
Quarter: 2018Q3

REPORT INFORMATION
  Report Type: Report from Study
  Country: US (occurrence: US)
  Receive Date: 20180703
  Receipt Date: 20180703
  Transmission Date: 20181010
  Serious: Yes (Death, Hospitalization, Other)
  Sender: FDA-Public Use
  Company Number: US-AMGEN-USACT2018064618

PATIENT
  Age: 91 Year
  Sex: Male
  Weight: 82.5 kg

DRUGS (22)
  1. TALIMOGENE LAHERPAREPVEC [Suspect]
     Active Substance: TALIMOGENE LAHERPAREPVEC
     Dosage: 10^8 PFU/ML ON DAY 1 (CYCLE 6+CYCLE=14 DAYS)
     Route: 036
  2. NIVOLUMAB [Suspect]
     Active Substance: NIVOLUMAB
     Dosage: 3 MG/KG/DAY, UNK
     Route: 042
     Dates: end: 20180405
  3. NIVOLUMAB [Suspect]
     Active Substance: NIVOLUMAB
     Indication: NEUROENDOCRINE CARCINOMA OF THE SKIN
     Dosage: 3 MG/KG, UNK (OVER 60 MINUTES ON DAY 1)
     Route: 042
     Dates: start: 20171218
  4. FAMOTIDINE. [Concomitant]
     Active Substance: FAMOTIDINE
     Dosage: UNK
  5. ASPIRIN. [Concomitant]
     Active Substance: ASPIRIN
     Dosage: UNK
  6. POTASSIUM CHLORIDE. [Concomitant]
     Active Substance: POTASSIUM CHLORIDE
     Dosage: UNK, REDUCED DOSE
     Dates: start: 20180219
  7. CARVEDILOL. [Concomitant]
     Active Substance: CARVEDILOL
     Dosage: UNK
  8. PREDNISONE. [Concomitant]
     Active Substance: PREDNISONE
     Dosage: UNK UNK, DAILY
     Route: 048
     Dates: start: 20180219
  9. COENZYME Q10 [Concomitant]
     Active Substance: UBIDECARENONE
     Dosage: UNK
  10. INDOMETHACIN. [Concomitant]
     Active Substance: INDOMETHACIN
     Dosage: UNK
  11. CLOPIDOGREL [Concomitant]
     Active Substance: CLOPIDOGREL BISULFATE
     Dosage: UNK
  12. POTASSIUM CHLORIDE. [Concomitant]
     Active Substance: POTASSIUM CHLORIDE
     Indication: OEDEMA PERIPHERAL
     Dosage: UNK
  13. DIPHENHYDRAMINE. [Concomitant]
     Active Substance: DIPHENHYDRAMINE
     Dosage: UNK
  14. ATORVASTATIN [Concomitant]
     Active Substance: ATORVASTATIN
     Dosage: UNK
  15. DIGOXIN. [Concomitant]
     Active Substance: DIGOXIN
     Dosage: UNK
  16. FINASTERIDE. [Concomitant]
     Active Substance: FINASTERIDE
     Dosage: UNK
  17. LASIX [Concomitant]
     Active Substance: FUROSEMIDE
     Dosage: UNK, REDUCED DOSE
     Dates: start: 20180219
  18. TAMSULOSIN [Concomitant]
     Active Substance: TAMSULOSIN
     Dosage: UNK
  19. TALIMOGENE LAHERPAREPVEC [Suspect]
     Active Substance: TALIMOGENE LAHERPAREPVEC
     Indication: NEUROENDOCRINE CARCINOMA OF THE SKIN
     Dosage: 10^6 PFU/ML, ON DAY 1 (CYCLE 1, CYCLE = 21)
     Route: 036
     Dates: start: 20171004
  20. TALIMOGENE LAHERPAREPVEC [Suspect]
     Active Substance: TALIMOGENE LAHERPAREPVEC
     Dosage: 10^8 PFU/ML, (ON DAY 1) UNK (CYCLE 2?5, CYCLE =14 DAYS)
     Route: 036
  21. ACETAMINOPHEN. [Concomitant]
     Active Substance: ACETAMINOPHEN
     Dosage: UNK
  22. LASIX [Concomitant]
     Active Substance: FUROSEMIDE
     Indication: OEDEMA PERIPHERAL
     Dosage: UNK
     Dates: start: 20180217

REACTIONS (7)
  - Autoimmune disorder [Recovered/Resolved]
  - Deep vein thrombosis [Unknown]
  - Gastrointestinal haemorrhage [Fatal]
  - Cardiac failure congestive [Fatal]
  - Muscular weakness [Recovering/Resolving]
  - Hepatitis [Unknown]
  - Mental status changes [Unknown]

NARRATIVE: CASE EVENT DATE: 201802
